FAERS Safety Report 4844928-7 (Version None)
Quarter: 2005Q4

REPORT INFORMATION
  Report Type: 
  Country: None (occurrence: None)
  Receive Date: 20051128
  Receipt Date: 20051115
  Transmission Date: 20060501
  Serious: Yes (Other)
  Sender: FDA-Public Use
  Company Number: IMP_1927_2005

PATIENT
  Age: 15 Year
  Sex: Female

DRUGS (2)
  1. OMEPRAZOLE [Suspect]
     Indication: GASTRITIS
     Dosage: 20 MG QDAY PO
     Route: 048
  2. OMEPRAZOLE [Suspect]
     Indication: GASTRITIS
     Dosage: 40 MG QDAY IV
     Route: 042

REACTIONS (2)
  - HEPATITIS [None]
  - HEPATOTOXICITY [None]
